FAERS Safety Report 9772382 (Version 2)
Quarter: 2014Q1

REPORT INFORMATION
  Report Type: Spontaneous
  Country: DK (occurrence: AU)
  Receive Date: 20131219
  Receipt Date: 20140213
  Transmission Date: 20141002
  Serious: Yes (Other)
  Sender: FDA-Public Use
  Company Number: AU-FRI-1000052350

PATIENT
  Age: 60 Year
  Sex: Female

DRUGS (6)
  1. CITALOPRAM [Suspect]
  2. ARSENIC TRIOXIDE [Suspect]
  3. EFEXOR-XR [Suspect]
  4. SEROQUEL XR [Suspect]
     Indication: DEPRESSION
     Dosage: 150 MG
     Route: 048
  5. WARFARIN SODIUM [Suspect]
     Indication: PULMONARY EMBOLISM
  6. CELEXA [Suspect]

REACTIONS (4)
  - Electrocardiogram QT prolonged [Unknown]
  - Acute promyelocytic leukaemia [Recovering/Resolving]
  - Neutropenia [Unknown]
  - Drug interaction [Unknown]
